FAERS Safety Report 4656144-2 (Version None)
Quarter: 2005Q2

REPORT INFORMATION
  Report Type: 
  Country: None (occurrence: None)
  Receive Date: 20050505
  Receipt Date: 20050418
  Transmission Date: 20051028
  Serious: Yes (Death)
  Sender: FDA-Public Use
  Company Number: US_0504115930

PATIENT
  Age: 43 Year
  Sex: Female
  Weight: 99 kg

DRUGS (1)
  1. XIGRIS [Suspect]
     Indication: SEPSIS

REACTIONS (1)
  - MULTI-ORGAN FAILURE [None]
